FAERS Safety Report 5981496-0 (Version None)
Quarter: 2008Q4

REPORT INFORMATION
  Report Type: 
  Country: None (occurrence: None)
  Receive Date: 20081205
  Receipt Date: 20081125
  Transmission Date: 20090506
  Serious: Yes (Hospitalization)
  Sender: FDA-Public Use
  Company Number: PHHO2008FR13516

PATIENT
  Sex: Female

DRUGS (1)
  1. STI571/CGP57148B T35717+CAPS [Suspect]
     Indication: GASTROINTESTINAL STROMAL TUMOUR
     Dosage: 400 MG
     Route: 048
     Dates: start: 20050817, end: 20061012

REACTIONS (5)
  - ALCOHOLISM [None]
  - FALL [None]
  - FEMUR FRACTURE [None]
  - OSTEOSYNTHESIS [None]
  - SURGERY [None]
